FAERS Safety Report 11662784 (Version 1)
Quarter: 2015Q4

REPORT INFORMATION
  Report Type: Spontaneous
  Country: US (occurrence: US)
  Receive Date: 20151027
  Receipt Date: 20151027
  Transmission Date: 20160304
  Serious: No
  Sender: FDA-Public Use
  Company Number: US-MEDA-2013090036

PATIENT
  Age: 73 Year
  Sex: Female
  Weight: 61 kg

DRUGS (6)
  1. DYMISTA [Suspect]
     Active Substance: AZELASTINE HYDROCHLORIDE\FLUTICASONE PROPIONATE
     Indication: EAR DISCOMFORT
     Dates: start: 20130905, end: 20130905
  2. DYMISTA [Suspect]
     Active Substance: AZELASTINE HYDROCHLORIDE\FLUTICASONE PROPIONATE
     Indication: NASAL CONGESTION
     Dates: start: 20130906, end: 20130907
  3. DYMISTA [Suspect]
     Active Substance: AZELASTINE HYDROCHLORIDE\FLUTICASONE PROPIONATE
     Indication: SINUSITIS
     Dates: start: 20130906, end: 20130907
  4. DYMISTA [Suspect]
     Active Substance: AZELASTINE HYDROCHLORIDE\FLUTICASONE PROPIONATE
     Indication: EAR DISCOMFORT
     Dates: start: 20130906, end: 20130907
  5. DYMISTA [Suspect]
     Active Substance: AZELASTINE HYDROCHLORIDE\FLUTICASONE PROPIONATE
     Indication: NASAL CONGESTION
     Dates: start: 20130905, end: 20130905
  6. DYMISTA [Suspect]
     Active Substance: AZELASTINE HYDROCHLORIDE\FLUTICASONE PROPIONATE
     Indication: SINUSITIS
     Dates: start: 20130905, end: 20130905

REACTIONS (6)
  - Fatigue [Recovered/Resolved]
  - Activities of daily living impaired [Recovered/Resolved]
  - Heart rate increased [Recovered/Resolved]
  - Paraesthesia oral [Recovered/Resolved]
  - Swollen tongue [Recovered/Resolved]
  - Product use issue [Recovered/Resolved]

NARRATIVE: CASE EVENT DATE: 20130905
